FAERS Safety Report 8318994 (Version 5)
Quarter: 2013Q2

REPORT INFORMATION
  Report Type: Spontaneous
  Country: GB (occurrence: GB)
  Receive Date: 20120103
  Receipt Date: 20130626
  Transmission Date: 20140414
  Serious: Yes (Other)
  Sender: FDA-Public Use
  Company Number: GB-PFIZER INC-2011316925

PATIENT
  Age: 70 Year
  Sex: Female
  Weight: 77.5 kg

DRUGS (5)
  1. AMLODIPINE BESILATE [Suspect]
     Indication: ESSENTIAL HYPERTENSION
     Dosage: 5 MG, DAILY
     Route: 048
     Dates: start: 20051221
  2. AMLODIPINE BESILATE [Suspect]
     Dosage: 10 MG, DAILY
     Dates: end: 201110
  3. AMLODIPINE BESILATE [Suspect]
     Dosage: 5 MG, 1X/DAY
     Dates: start: 201110, end: 20111111
  4. CANDESARTAN [Concomitant]
     Indication: ESSENTIAL HYPERTENSION
     Dosage: 32 MG, DAILY
     Route: 048
     Dates: start: 20060612
  5. BENDROFLUMETHIAZIDE [Concomitant]
     Indication: ESSENTIAL HYPERTENSION
     Dosage: 2.5 MG, 1X/DAY
     Route: 048
     Dates: start: 201106

REACTIONS (5)
  - Cellulitis [Recovering/Resolving]
  - Ulcer [Recovering/Resolving]
  - Oedema peripheral [Recovering/Resolving]
  - Dermatosis [Recovering/Resolving]
  - Dermatitis [Recovering/Resolving]
